FAERS Safety Report 9049161 (Version 1)
Quarter: 2013Q1

REPORT INFORMATION
  Report Type: Report from Study
  Country: US (occurrence: US)
  Receive Date: 20130205
  Receipt Date: 20130205
  Transmission Date: 20140127
  Serious: Yes (Other)
  Sender: FDA-Public Use
  Company Number: US-ROCHE-1187211

PATIENT
  Sex: 0

DRUGS (2)
  1. BEVACIZUMAB [Suspect]
     Indication: HEAD AND NECK CANCER
     Route: 065
  2. PEMETREXED [Suspect]
     Indication: HEAD AND NECK CANCER
     Route: 065

REACTIONS (3)
  - Stomatitis [Unknown]
  - Dysphagia [Unknown]
  - Fatigue [Unknown]
